FAERS Safety Report 6027502-9 (Version None)
Quarter: 2009Q1

REPORT INFORMATION
  Report Type: 
  Country: None (occurrence: None)
  Receive Date: 20090105
  Receipt Date: 20081212
  Transmission Date: 20090719
  Serious: No
  Sender: FDA-Public Use
  Company Number: US-BAYER-200814891BCC

PATIENT
  Age: 37 Year
  Sex: Male
  Weight: 113 kg

DRUGS (2)
  1. ALEVE [Suspect]
     Indication: DRUG USE FOR UNKNOWN INDICATION
     Dosage: TOTAL DAILY DOSE: 2200 MG  UNIT DOSE: 220 MG
     Route: 048
     Dates: start: 20081212
  2. ALCOHOL [Concomitant]
     Dates: start: 20081212

REACTIONS (1)
  - HYPERSOMNIA [None]
